FAERS Safety Report 7988281-9 (Version None)
Quarter: 2011Q4

REPORT INFORMATION
  Report Type: 
  Country: None (occurrence: None)
  Receive Date: 20111216
  Receipt Date: 20111213
  Transmission Date: 20120403
  Serious: Yes (Other)
  Sender: FDA-Public Use
  Company Number: US-JNJFOC-20111005503

PATIENT
  Sex: Male
  Weight: 143.79 kg

DRUGS (2)
  1. TRILIPIX [Concomitant]
  2. STELARA [Suspect]
     Indication: PSORIASIS
     Route: 058
     Dates: start: 20110803, end: 20110803

REACTIONS (2)
  - SEPSIS [None]
  - MYOCARDIAL INFARCTION [None]
